FAERS Safety Report 9429081 (Version 1)
Quarter: 2013Q3

REPORT INFORMATION
  Report Type: Report from Study
  Country: CA (occurrence: CA)
  Receive Date: 20130730
  Receipt Date: 20130730
  Transmission Date: 20140515
  Serious: Yes (Hospitalization)
  Sender: FDA-Public Use
  Company Number: CA-JNJFOC-20130716736

PATIENT
  Age: 22 Year
  Sex: Female
  Weight: 63.5 kg

DRUGS (2)
  1. SIMPONI [Suspect]
     Indication: RHEUMATOID ARTHRITIS
     Route: 058
     Dates: start: 20121123
  2. CORTISONE [Suspect]
     Indication: CHEST PAIN
     Route: 065
     Dates: start: 201307

REACTIONS (1)
  - Post-traumatic stress disorder [Recovering/Resolving]
